FAERS Safety Report 7593543-3 (Version None)
Quarter: 2011Q3

REPORT INFORMATION
  Report Type: 
  Country: None (occurrence: None)
  Receive Date: 20110706
  Receipt Date: 20110627
  Transmission Date: 20111222
  Serious: Yes (Hospitalization, Other)
  Sender: FDA-Public Use
  Company Number: US-BAYER-201029356NA

PATIENT
  Age: 28 Year
  Sex: Female
  Weight: 51.247 kg

DRUGS (8)
  1. YAZ [Suspect]
     Route: 048
     Dates: start: 20061222, end: 20100615
  2. MIRALAX [Concomitant]
     Dosage: UNK UNK, QD
  3. CIPROFLOXACIN [Concomitant]
     Dosage: UNK
     Dates: start: 20080301
  4. LAMICTAL [Concomitant]
     Dosage: 100 MG, QD
  5. KEPPRA [Concomitant]
     Indication: CONVULSION
     Dosage: 750 MG, BID
     Dates: start: 20080201
  6. YASMIN [Suspect]
     Indication: ORAL CONTRACEPTION
     Route: 048
     Dates: start: 20061222
  7. DROSPIRENONE AND ETHINYL ESTRADIOL [Suspect]
     Route: 048
     Dates: start: 20061222, end: 20100615
  8. FOLATE SODIUM [Concomitant]
     Dosage: 2 MG, QD
     Dates: start: 20080201

REACTIONS (6)
  - CHOLESTEROSIS [None]
  - CHOLECYSTITIS CHRONIC [None]
  - GASTROINTESTINAL DISORDER [None]
  - POST CHOLECYSTECTOMY SYNDROME [None]
  - CHOLELITHIASIS [None]
  - EMOTIONAL DISTRESS [None]
